FAERS Safety Report 6718977-8 (Version None)
Quarter: 2010Q2

REPORT INFORMATION
  Report Type: 
  Country: None (occurrence: None)
  Receive Date: 20100511
  Receipt Date: 20100426
  Transmission Date: 20101027
  Serious: Yes (Other)
  Sender: FDA-Public Use
  Company Number: US-BAYER-200937031NA

PATIENT
  Age: 55 Year
  Sex: Female
  Weight: 49 kg

DRUGS (1)
  1. YASMIN [Suspect]
     Indication: DRUG USE FOR UNKNOWN INDICATION
     Route: 048

REACTIONS (3)
  - PAIN [None]
  - PULMONARY EMBOLISM [None]
  - THROMBOSIS [None]
